FAERS Safety Report 17078352 (Version 1)
Quarter: 2019Q4

REPORT INFORMATION
  Report Type: Report from Study
  Country: US (occurrence: US)
  Receive Date: 20191126
  Receipt Date: 20191126
  Transmission Date: 20200122
  Serious: Yes (Disabling)
  Sender: FDA-Public Use
  Company Number: US-AMGEN-USANI2019182967

PATIENT
  Age: 29 Year
  Sex: Female

DRUGS (2)
  1. ELAVIL [ALLOPURINOL] [Concomitant]
     Active Substance: ALLOPURINOL
     Dosage: UNK
     Dates: end: 20191026
  2. ERENUMAB [Suspect]
     Active Substance: ERENUMAB
     Indication: MIGRAINE
     Dosage: UNK, QMO
     Route: 065
     Dates: start: 201807, end: 201810

REACTIONS (3)
  - Constipation [Not Recovered/Not Resolved]
  - Migraine [Recovered/Resolved]
  - Alopecia [Recovered/Resolved]

NARRATIVE: CASE EVENT DATE: 2018
